FAERS Safety Report 10079423 (Version 2)
Quarter: 2014Q2

REPORT INFORMATION
  Report Type: Spontaneous
  Country: IT (occurrence: IT)
  Receive Date: 20140415
  Receipt Date: 20140423
  Transmission Date: 20141212
  Serious: Yes (Other)
  Sender: FDA-Public Use
  Company Number: PHHY2014IT045539

PATIENT
  Age: 75 Year
  Sex: Male

DRUGS (6)
  1. TASIGNA [Suspect]
     Indication: CHRONIC MYELOID LEUKAEMIA
     Dosage: 800 MG, DAILY
     Route: 048
     Dates: start: 20090727, end: 20140414
  2. LOSARTAN [Concomitant]
     Dosage: 50 MG, UNK
     Route: 048
  3. ATENOLOL [Concomitant]
     Dosage: 50 MG, UNK
     Route: 048
  4. SIMVASTATIN [Concomitant]
     Dosage: 20 MG, UNK
     Route: 048
  5. CARDIOASPIRIN [Concomitant]
     Dosage: 100 MG, UNK
     Route: 048
  6. OMEPRAZEN [Concomitant]
     Dosage: 10 MG, UNK
     Route: 048

REACTIONS (1)
  - Peripheral arterial occlusive disease [Not Recovered/Not Resolved]
